FAERS Safety Report 12842885 (Version 7)
Quarter: 2020Q1

REPORT INFORMATION
  Report Type: Spontaneous
  Country: US (occurrence: US)
  Receive Date: 20161013
  Receipt Date: 20200204
  Transmission Date: 20200409
  Serious: Yes (Hospitalization, Other)
  Sender: FDA-Public Use
  Company Number: US-PFIZER INC-2016478505

PATIENT
  Age: 72 Year
  Sex: Female
  Weight: 59 kg

DRUGS (9)
  1. LOSARTAN. [Concomitant]
     Active Substance: LOSARTAN
     Dosage: 50 MG, 1X/DAY
     Route: 048
  2. INSULIN [Concomitant]
     Active Substance: INSULIN NOS
     Indication: DIABETES MELLITUS
     Dosage: UNK(TAKING MANY YEARS; 70/30 AT NIGHT; AVERAGES AROUND 8-10 EVERY SHOT)
  3. PREDNISONE. [Concomitant]
     Active Substance: PREDNISONE
     Indication: RHEUMATOID ARTHRITIS
     Dosage: 4 MG, DAILY
     Route: 048
  4. DULOXETINE. [Concomitant]
     Active Substance: DULOXETINE
     Dosage: UNK
  5. RISPERIDONE. [Concomitant]
     Active Substance: RISPERIDONE
     Dosage: 0.25 MG, 1X/DAY
     Route: 048
     Dates: start: 201906, end: 201907
  6. LEVOTHYROXINE. [Concomitant]
     Active Substance: LEVOTHYROXINE
     Indication: THYROID DISORDER
     Dosage: UNK
  7. XELJANZ [Suspect]
     Active Substance: TOFACITINIB CITRATE
     Indication: RHEUMATOID ARTHRITIS
  8. RISPERIDONE. [Concomitant]
     Active Substance: RISPERIDONE
     Indication: AFFECTIVE DISORDER
     Dosage: 0.5 MG, UNK
  9. XELJANZ [Suspect]
     Active Substance: TOFACITINIB CITRATE
     Indication: OSTEOPOROSIS
     Dosage: 5 MG, 2X/DAY
     Route: 048

REACTIONS (7)
  - Malaise [Unknown]
  - Feeling abnormal [Recovered/Resolved]
  - Fall [Not Recovered/Not Resolved]
  - Influenza [Unknown]
  - Femur fracture [Recovering/Resolving]
  - Hip fracture [Unknown]
  - Body height decreased [Unknown]

NARRATIVE: CASE EVENT DATE: 20180203
